FAERS Safety Report 19702233 (Version 1)
Quarter: 2021Q3

REPORT INFORMATION
  Report Type: Spontaneous
  Country: CA (occurrence: CA)
  Receive Date: 20210814
  Receipt Date: 20210814
  Transmission Date: 20211014
  Serious: Yes (Death, Hospitalization, Other)
  Sender: FDA-Public Use
  Company Number: CA-TEVA-2021-CA-1936226

PATIENT
  Age: 67 Year
  Sex: Male

DRUGS (1)
  1. TEVA ETOPOSIDE [Suspect]
     Active Substance: ETOPOSIDE
     Indication: SMALL CELL LUNG CANCER
     Dosage: 20 MG/ML, DOSE: 160 MG
     Route: 065
     Dates: start: 20210519

REACTIONS (2)
  - Acute myocardial infarction [Fatal]
  - Acute coronary syndrome [Unknown]

NARRATIVE: CASE EVENT DATE: 2021
